FAERS Safety Report 23917748 (Version 2)
Quarter: 2024Q2

REPORT INFORMATION
  Report Type: Spontaneous
  Country: US (occurrence: US)
  Receive Date: 20240530
  Receipt Date: 20240614
  Transmission Date: 20240716
  Serious: Yes (Life-Threatening, Hospitalization)
  Sender: FDA-Public Use
  Company Number: US-TEVA-VS-3202244

PATIENT
  Age: 42 Year
  Sex: Female

DRUGS (4)
  1. EPINEPHRINE [Suspect]
     Active Substance: EPINEPHRINE
     Indication: Face oedema
     Route: 065
  2. EPINEPHRINE [Suspect]
     Active Substance: EPINEPHRINE
     Indication: Dyspnoea
  3. EPINEPHRINE [Suspect]
     Active Substance: EPINEPHRINE
     Indication: Urticaria
  4. EPINEPHRINE [Suspect]
     Active Substance: EPINEPHRINE
     Indication: Tongue oedema

REACTIONS (1)
  - Drug ineffective [Unknown]
